FAERS Safety Report 7156453-1 (Version None)
Quarter: 2010Q4

REPORT INFORMATION
  Report Type: 
  Country: None (occurrence: None)
  Receive Date: 20101214
  Receipt Date: 20101201
  Transmission Date: 20110411
  Serious: Yes (Other)
  Sender: FDA-Public Use
  Company Number: DE-ROCHE-748005

PATIENT
  Age: 79 Year
  Sex: Male

DRUGS (2)
  1. BONDRONAT [Suspect]
     Route: 042
  2. MARCUMAR [Concomitant]

REACTIONS (1)
  - OSTEONECROSIS OF JAW [None]
